FAERS Safety Report 11419573 (Version 1)
Quarter: 2015Q3

REPORT INFORMATION
  Report Type: Spontaneous
  Country: GB (occurrence: GB)
  Receive Date: 20150826
  Receipt Date: 20150826
  Transmission Date: 20151125
  Serious: Yes (Death)
  Sender: FDA-Public Use
  Company Number: GB-PFIZER INC-2015280250

PATIENT
  Age: 69 Year
  Sex: Male

DRUGS (1)
  1. XALKORI [Suspect]
     Active Substance: CRIZOTINIB
     Indication: NEOPLASM MALIGNANT
     Dosage: 200 MG, 2X/DAY

REACTIONS (6)
  - Blood electrolytes abnormal [Unknown]
  - Disease progression [Unknown]
  - Neoplasm malignant [Unknown]
  - Acidosis [Unknown]
  - Death [Fatal]
  - Malaise [Unknown]
